FAERS Safety Report 4651604-2 (Version None)
Quarter: 2005Q2

REPORT INFORMATION
  Report Type: 
  Country: None (occurrence: None)
  Receive Date: 20050502
  Receipt Date: 20050415
  Transmission Date: 20051028
  Serious: Yes (Other)
  Sender: FDA-Public Use
  Company Number: COT_0054_2005

PATIENT
  Age: 17 Year
  Sex: Female

DRUGS (6)
  1. ILOPROST [Suspect]
     Indication: PULMONARY HYPERTENSION
     Dosage: 2.5 MCG IH
     Route: 055
     Dates: start: 20050413
  2. ILOPROST [Suspect]
     Dosage: 2.5 MCG IH
     Route: 055
  3. ILOPROST [Suspect]
     Indication: PULMONARY HYPERTENSION
     Dosage: 5 MCG IH
     Route: 055
     Dates: end: 20050415
  4. ILOPROST [Suspect]
     Dosage: 5 MCG IH
     Route: 055
     Dates: end: 20050415
  5. TRACLEER [Concomitant]
  6. VIAGRA [Concomitant]

REACTIONS (2)
  - FORCED EXPIRATORY VOLUME DECREASED [None]
  - OXYGEN SATURATION DECREASED [None]
